FAERS Safety Report 9033524 (Version 2)
Quarter: 2013Q1

REPORT INFORMATION
  Report Type: Spontaneous
  Country: US (occurrence: US)
  Receive Date: 20130128
  Receipt Date: 20130301
  Transmission Date: 20140127
  Serious: Yes (Other)
  Sender: FDA-Public Use
  Company Number: US-ASTRAZENECA-2012SE81080

PATIENT
  Age: 56 Year
  Sex: Female

DRUGS (1)
  1. NEXIUM [Suspect]
     Route: 048

REACTIONS (5)
  - Fall [Unknown]
  - Upper limb fracture [Not Recovered/Not Resolved]
  - Gastric disorder [Unknown]
  - Malaise [Unknown]
  - Drug dose omission [Unknown]
